FAERS Safety Report 23973607 (Version 1)
Quarter: 2024Q2

REPORT INFORMATION
  Report Type: Spontaneous
  Country: AR (occurrence: AR)
  Receive Date: 20240613
  Receipt Date: 20240613
  Transmission Date: 20240715
  Serious: Yes (Life-Threatening, Other)
  Sender: FDA-Public Use
  Company Number: AR-002147023-NVSC2024AR121524

PATIENT
  Age: 58 Year
  Sex: Female

DRUGS (3)
  1. LETROZOLE [Suspect]
     Active Substance: LETROZOLE
     Indication: Breast cancer
     Dosage: UNK
     Route: 065
  2. RIBOCICLIB [Suspect]
     Active Substance: RIBOCICLIB
     Indication: Breast cancer
     Dosage: UNK
     Route: 065
  3. ZOLEDRONIC ACID [Suspect]
     Active Substance: ZOLEDRONIC ACID
     Indication: Breast cancer
     Dosage: UNK
     Route: 065

REACTIONS (11)
  - White blood cell count decreased [Unknown]
  - Breast calcifications [Unknown]
  - Breast cancer [Unknown]
  - Hilar lymphadenopathy [Unknown]
  - Lymphadenopathy [Unknown]
  - Bone lesion [Unknown]
  - Palmoplantar keratoderma [Unknown]
  - Skin mass [Unknown]
  - Vitiligo [Unknown]
  - Urticaria [Unknown]
  - Pruritus [Unknown]
